FAERS Safety Report 16679108 (Version 1)
Quarter: 2019Q3

REPORT INFORMATION
  Report Type: Spontaneous
  Country: CN (occurrence: CN)
  Receive Date: 20190807
  Receipt Date: 20190807
  Transmission Date: 20191004
  Serious: Yes (Hospitalization)
  Sender: FDA-Public Use
  Company Number: CN-BAXTER-2019BAX015129

PATIENT
  Age: 54 Year
  Sex: Male
  Weight: 80.5 kg

DRUGS (6)
  1. MIGLITOL. [Suspect]
     Active Substance: MIGLITOL
     Indication: BLOOD GLUCOSE INCREASED
     Dosage: TABLETS
     Route: 048
     Dates: start: 20190708, end: 20190716
  2. AMLODIPINE BESYLATE. [Concomitant]
     Active Substance: AMLODIPINE BESYLATE
     Indication: BLOOD PRESSURE INCREASED
     Dosage: TABLETS
     Route: 048
     Dates: start: 20190705, end: 20190723
  3. 20% MANNITOL INJECTION [Suspect]
     Active Substance: MANNITOL
     Indication: INTRACRANIAL PRESSURE INCREASED
     Route: 041
     Dates: start: 20190712, end: 20190716
  4. IRBESARTAN AND HYDROCHLOROTHIAZIDE [Suspect]
     Active Substance: HYDROCHLOROTHIAZIDE\IRBESARTAN
     Indication: BLOOD PRESSURE INCREASED
     Dosage: TABLETS
     Route: 048
     Dates: start: 20190707, end: 20190716
  5. SITAGLIPTIN METFORMIN [Suspect]
     Active Substance: METFORMIN HYDROCHLORIDE\SITAGLIPTIN PHOSPHATE
     Indication: BLOOD GLUCOSE INCREASED
     Dosage: DOSE: 50/850 MG?TABLETS
     Route: 048
     Dates: start: 20190708, end: 20190716
  6. LABETALOL HYDROCHLORIDE. [Concomitant]
     Active Substance: LABETALOL HYDROCHLORIDE
     Indication: BLOOD PRESSURE INCREASED
     Dosage: TABLETS
     Route: 048
     Dates: start: 20190708, end: 20190723

REACTIONS (1)
  - Renal impairment [Recovering/Resolving]

NARRATIVE: CASE EVENT DATE: 20190716
